FAERS Safety Report 6432741-9 (Version None)
Quarter: 2009Q4

REPORT INFORMATION
  Report Type: 
  Country: None (occurrence: None)
  Receive Date: 20091109
  Receipt Date: 20091030
  Transmission Date: 20100525
  Serious: Yes (Hospitalization)
  Sender: FDA-Public Use
  Company Number: TR-ASTRAZENECA-2009SE05278

PATIENT
  Age: 16761 Day
  Sex: Male
  Weight: 73 kg

DRUGS (1)
  1. SEROQUEL XR [Suspect]
     Route: 048
     Dates: start: 20081020, end: 20090623

REACTIONS (1)
  - PSYCHOTIC DISORDER [None]
